FAERS Safety Report 9136465 (Version 1)
Quarter: 2013Q1

REPORT INFORMATION
  Report Type: Spontaneous
  Country: US (occurrence: US)
  Receive Date: 20130219
  Receipt Date: 20130219
  Transmission Date: 20140127
  Serious: No
  Sender: FDA-Public Use
  Company Number: US-BRISTOL-MYERS SQUIBB COMPANY-16839698

PATIENT
  Age: 49 Year
  Sex: Female
  Weight: 117.91 kg

DRUGS (5)
  1. ORENCIA [Suspect]
     Indication: RHEUMATOID ARTHRITIS
     Dosage: AUG/SEP11
     Route: 042
     Dates: start: 2011
  2. METHOTREXATE [Suspect]
  3. MOBIC [Concomitant]
  4. CYMBALTA [Concomitant]
  5. FOLIC ACID [Concomitant]

REACTIONS (5)
  - Bronchitis [Recovered/Resolved]
  - Lower respiratory tract infection [Recovered/Resolved]
  - Ear infection [Recovered/Resolved]
  - Pain [Recovered/Resolved]
  - Cough [Recovered/Resolved]
